FAERS Safety Report 6284295-8 (Version None)
Quarter: 2009Q3

REPORT INFORMATION
  Report Type: 
  Country: None (occurrence: None)
  Receive Date: 20090727
  Receipt Date: 20090720
  Transmission Date: 20100115
  Serious: Yes (Other)
  Sender: FDA-Public Use
  Company Number: PHEH2009US07312

PATIENT
  Weight: 28.571 kg

DRUGS (5)
  1. TRILEPTAL [Suspect]
     Indication: BIPOLAR DISORDER
     Dosage: 150 MG, BID
     Route: 048
     Dates: start: 20090616, end: 20090705
  2. CONCERTA [Concomitant]
     Indication: ATTENTION DEFICIT/HYPERACTIVITY DISORDER
     Dosage: 27 MG QAM
     Route: 048
     Dates: start: 20090415
  3. SEROQUEL [Concomitant]
     Indication: BIPOLAR DISORDER
     Dosage: 50 MG QAM
     Route: 048
     Dates: start: 20090315
  4. LAMICTAL ^BURROUGHS WELLCOME^ [Concomitant]
     Indication: BIPOLAR DISORDER
     Dosage: 100 MG, QD
     Route: 048
     Dates: start: 20090315
  5. WELLBUTRIN SR [Concomitant]
     Dosage: 150 MG, QD
     Route: 048
     Dates: start: 20090315

REACTIONS (2)
  - CONTUSION [None]
  - PURPURA [None]
